FAERS Safety Report 4333788-9 (Version None)
Quarter: 2004Q2

REPORT INFORMATION
  Report Type: 
  Country: None (occurrence: None)
  Receive Date: 20040406
  Receipt Date: 20040406
  Transmission Date: 20050107
  Serious: Yes (Hospitalization)
  Sender: FDA-Public Use
  Company Number: None

PATIENT
  Age: 81 Year
  Sex: Female
  Weight: 62.1428 kg

DRUGS (6)
  1. ARICEPT [Suspect]
     Indication: DEMENTIA ALZHEIMER'S TYPE
     Dosage: ORAL
     Route: 048
     Dates: start: 20040201, end: 20040203
  2. KLOR-CON [Concomitant]
  3. ASPIRIN [Concomitant]
  4. PROPRANOLOL/HCTZ [Concomitant]
  5. CALTRATE [Concomitant]
  6. TAMOXIFEN CITRATE [Concomitant]

REACTIONS (1)
  - GRAND MAL CONVULSION [None]
